FAERS Safety Report 20766701 (Version 1)
Quarter: 2022Q2

REPORT INFORMATION
  Report Type: Report from Study
  Country: US (occurrence: US)
  Receive Date: 20220429
  Receipt Date: 20220429
  Transmission Date: 20220721
  Serious: Yes (Death)
  Sender: FDA-Public Use
  Company Number: US-ABBVIE-22K-163-4374693-00

PATIENT
  Sex: Female

DRUGS (11)
  1. VENCLEXTA [Suspect]
     Active Substance: VENETOCLAX
     Indication: Chronic lymphocytic leukaemia
     Route: 048
  2. VENCLEXTA [Suspect]
     Active Substance: VENETOCLAX
     Route: 048
  3. VENCLEXTA [Suspect]
     Active Substance: VENETOCLAX
     Route: 048
  4. VENCLEXTA [Suspect]
     Active Substance: VENETOCLAX
     Route: 048
  5. VENCLEXTA [Suspect]
     Active Substance: VENETOCLAX
     Dosage: TAKE 2 TAB(200 MG TOTAL ) BY MOUTH DAILY FOR 28 DAYS
     Route: 048
     Dates: start: 20201222
  6. VENCLEXTA [Suspect]
     Active Substance: VENETOCLAX
     Dosage: TAKE 4 TAB BY MOUTH DAILY FOR 28 DAYS
     Route: 048
  7. GAZYVA [Suspect]
     Active Substance: OBINUTUZUMAB
     Indication: Chronic lymphocytic leukaemia
     Route: 042
  8. GAZYVA [Suspect]
     Active Substance: OBINUTUZUMAB
     Route: 042
  9. GAZYVA [Suspect]
     Active Substance: OBINUTUZUMAB
     Route: 042
  10. GAZYVA [Suspect]
     Active Substance: OBINUTUZUMAB
     Route: 042
  11. GAZYVA [Suspect]
     Active Substance: OBINUTUZUMAB
     Route: 042

REACTIONS (1)
  - Death [Fatal]
